FAERS Safety Report 17842515 (Version 2)
Quarter: 2021Q1

REPORT INFORMATION
  Report Type: Other
  Country: US (occurrence: US)
  Receive Date: 20200529
  Receipt Date: 20210205
  Transmission Date: 20210419
  Serious: Yes (Hospitalization)
  Sender: FDA-Public Use
  Company Number: US-ROCHE-2607909

PATIENT
  Age: 64 Year
  Sex: Male
  Weight: 86.26 kg

DRUGS (19)
  1. ADDERALL [Concomitant]
     Active Substance: AMPHETAMINE ASPARTATE\AMPHETAMINE SULFATE\DEXTROAMPHETAMINE SACCHARATE\DEXTROAMPHETAMINE SULFATE
  2. ACTHAR [Concomitant]
     Active Substance: CORTICOTROPIN
  3. ASPIRIN. [Concomitant]
     Active Substance: ASPIRIN
  4. BUPROPION. [Concomitant]
     Active Substance: BUPROPION
  5. AMPHETAMINE [Concomitant]
     Active Substance: AMPHETAMINE
  6. PRAVASTATIN. [Concomitant]
     Active Substance: PRAVASTATIN
  7. COREG [Concomitant]
     Active Substance: CARVEDILOL
  8. TELMISARTAN. [Concomitant]
     Active Substance: TELMISARTAN
  9. OCREVUS [Suspect]
     Active Substance: OCRELIZUMAB
     Indication: RELAPSING-REMITTING MULTIPLE SCLEROSIS
     Route: 042
  10. LASIX [Concomitant]
     Active Substance: FUROSEMIDE
  11. MICARDIS [Concomitant]
     Active Substance: TELMISARTAN
  12. ZANAFLEX [Concomitant]
     Active Substance: TIZANIDINE HYDROCHLORIDE
  13. XANAX [Concomitant]
     Active Substance: ALPRAZOLAM
  14. ANDROGEL [Concomitant]
     Active Substance: TESTOSTERONE
  15. OCREVUS [Suspect]
     Active Substance: OCRELIZUMAB
     Indication: PRIMARY PROGRESSIVE MULTIPLE SCLEROSIS
  16. LYRICA [Concomitant]
     Active Substance: PREGABALIN
  17. AMLODIPINE [Concomitant]
     Active Substance: AMLODIPINE BESYLATE
  18. NORCO [Concomitant]
     Active Substance: ACETAMINOPHEN\HYDROCODONE BITARTRATE
  19. CYMBALTA [Concomitant]
     Active Substance: DULOXETINE HYDROCHLORIDE

REACTIONS (5)
  - Off label use [Unknown]
  - Intentional product use issue [Unknown]
  - Pneumonia [Recovered/Resolved]
  - Influenza [Recovered/Resolved]
  - Gait disturbance [Recovered/Resolved]

NARRATIVE: CASE EVENT DATE: 20200223
